FAERS Safety Report 13729169 (Version 6)
Quarter: 2019Q3

REPORT INFORMATION
  Report Type: Report from Study
  Country: BR (occurrence: BR)
  Receive Date: 20170707
  Receipt Date: 20190916
  Transmission Date: 20191004
  Serious: Yes (Hospitalization)
  Sender: FDA-Public Use
  Company Number: BR-CELGENEUS-BRA-2017028856

PATIENT
  Age: 57 Year
  Sex: Female
  Weight: 52.9 kg

DRUGS (185)
  1. RITUXIMAB. [Suspect]
     Active Substance: RITUXIMAB
     Dosage: 637.5 MILLIGRAM/SQ. METER
     Route: 041
     Dates: start: 20170120, end: 20170120
  2. POTASSIUM CHLORIDE. [Concomitant]
     Active Substance: POTASSIUM CHLORIDE
     Dosage: 30 MILLILITER
     Route: 041
     Dates: start: 20170222, end: 20170222
  3. POTASSIUM CHLORIDE. [Concomitant]
     Active Substance: POTASSIUM CHLORIDE
     Dosage: 20 MILLILITER
     Route: 041
     Dates: start: 20170222, end: 20170222
  4. POTASSIUM CHLORIDE. [Concomitant]
     Active Substance: POTASSIUM CHLORIDE
     Dosage: 20 MILLILITER
     Route: 041
     Dates: start: 20170224, end: 20170224
  5. CISATRACURIUM. [Concomitant]
     Active Substance: CISATRACURIUM
     Dosage: 200 MILLIGRAM
     Route: 041
     Dates: start: 20170221, end: 20170221
  6. CISATRACURIUM. [Concomitant]
     Active Substance: CISATRACURIUM
     Dosage: 300 MILLILITER
     Route: 041
     Dates: start: 20170225, end: 20170226
  7. CISATRACURIUM. [Concomitant]
     Active Substance: CISATRACURIUM
     Dosage: 200 MILLILITER
     Route: 041
     Dates: start: 20170227, end: 20170227
  8. CISATRACURIUM. [Concomitant]
     Active Substance: CISATRACURIUM
     Dosage: 100 MILLILITER
     Route: 041
     Dates: start: 20170301, end: 20170302
  9. DIPHENHYDRAMINE HCL [Concomitant]
     Active Substance: DIPHENHYDRAMINE HYDROCHLORIDE
     Indication: H1N1 INFLUENZA
     Dosage: 50 MILLIGRAM
     Route: 041
     Dates: start: 20170217, end: 20170217
  10. DIPHENHYDRAMINE HCL [Concomitant]
     Active Substance: DIPHENHYDRAMINE HYDROCHLORIDE
     Dosage: 50 MILLIGRAM
     Route: 041
     Dates: start: 20170330, end: 20170330
  11. METHYLPREDNISOLONE. [Concomitant]
     Active Substance: METHYLPREDNISOLONE
     Indication: H1N1 INFLUENZA
     Dosage: 80 MILLIGRAM
     Route: 041
     Dates: start: 20170217, end: 20170218
  12. METHYLPREDNISOLONE. [Concomitant]
     Active Substance: METHYLPREDNISOLONE
     Dosage: 1000 MILLIGRAM
     Route: 041
     Dates: start: 20170228, end: 20170302
  13. TAZOCIN [Concomitant]
     Active Substance: PIPERACILLIN SODIUM\TAZOBACTAM SODIUM
     Indication: FEBRILE NEUTROPENIA
     Dosage: 4.5 MILLIGRAM
     Route: 041
     Dates: start: 20170217, end: 20170224
  14. ESCITALOPRAM [Concomitant]
     Active Substance: ESCITALOPRAM OXALATE
     Dosage: 10 MILLIGRAM (VO)
     Route: 065
     Dates: start: 20170323, end: 20170503
  15. STERILE SALINE [Concomitant]
     Dosage: 150 MILLILITER
     Route: 041
     Dates: start: 20170220, end: 20170220
  16. STERILE SALINE [Concomitant]
     Dosage: 200 MILLILITER
     Route: 041
     Dates: start: 20170222, end: 20170222
  17. STERILE SALINE [Concomitant]
     Dosage: 144 MILLILITER
     Route: 041
     Dates: start: 20170223, end: 20170223
  18. STERILE SALINE [Concomitant]
     Dosage: 250 MILLILITER
     Route: 041
     Dates: start: 20170224, end: 20170224
  19. STERILE SALINE [Concomitant]
     Dosage: 100 MILLILITER
     Route: 041
     Dates: start: 20170309, end: 20170309
  20. MIDAZOLAM [Concomitant]
     Active Substance: MIDAZOLAM HYDROCHLORIDE
     Indication: H1N1 INFLUENZA
     Dosage: 250 MILLIGRAM
     Route: 041
     Dates: start: 20170222, end: 20170224
  21. DEXMEDETOMIDINE. [Concomitant]
     Active Substance: DEXMEDETOMIDINE
     Indication: H1N1 INFLUENZA
     Dosage: 200 MICROGRAM
     Route: 041
     Dates: start: 20170222, end: 20170222
  22. DEXMEDETOMIDINE. [Concomitant]
     Active Substance: DEXMEDETOMIDINE
     Dosage: 800 MICROGRAM
     Route: 041
     Dates: start: 20170224, end: 20170224
  23. MERONEM [Concomitant]
     Active Substance: MEROPENEM
     Dosage: 500 MILLIGRAM
     Route: 041
     Dates: start: 20170307, end: 20170312
  24. HYDROCHLOROTHIAZIDE. [Concomitant]
     Active Substance: HYDROCHLOROTHIAZIDE
     Indication: H1N1 INFLUENZA
     Dosage: 25 MILLIGRAM
     Route: 065
     Dates: start: 20170224, end: 20170228
  25. DIGESAN [Concomitant]
     Active Substance: BROMOPRIDE
     Dosage: 10 MILLIGRAM
     Route: 041
     Dates: start: 20170310, end: 20170322
  26. PROPANTELINE [Concomitant]
     Dosage: 1 APPLICATION (TTS)
     Route: 065
     Dates: start: 20170309, end: 20170319
  27. BUSCOPAN [Concomitant]
     Active Substance: BUTYLSCOPOLAMINE BROMIDE
     Indication: H1N1 INFLUENZA
     Dosage: 5 MILLILITER
     Route: 055
     Dates: start: 20170306, end: 20170309
  28. PROSTIGMIN [Concomitant]
     Active Substance: NEOSTIGMINE BROMIDE
     Indication: H1N1 INFLUENZA
     Dosage: .5 MILLIGRAM
     Route: 041
     Dates: start: 20170310, end: 20170311
  29. CC-5013 [Suspect]
     Active Substance: LENALIDOMIDE
     Dosage: 15 MILLIGRAM
     Route: 048
     Dates: start: 20170408, end: 20170425
  30. TAZOBACTAM [Concomitant]
     Active Substance: TAZOBACTAM
     Indication: PRODUCT USED FOR UNKNOWN INDICATION
     Dosage: 18 GRAM
     Route: 041
     Dates: start: 20170218, end: 20170223
  31. GLYCOLYZED SALINE [Concomitant]
     Dosage: 100 MILLILITER
     Route: 041
     Dates: start: 20170223, end: 20170223
  32. GLYCOLYZED SALINE [Concomitant]
     Dosage: 248 MILLILITER
     Route: 041
     Dates: start: 20170305, end: 20170306
  33. HUMAN ALBUMIN [Concomitant]
     Active Substance: ALBUMIN HUMAN
     Dosage: 150 MILLILITER
     Route: 041
     Dates: start: 20170217, end: 20170218
  34. POTASSIUM CHLORIDE. [Concomitant]
     Active Substance: POTASSIUM CHLORIDE
     Dosage: 20 MILLILITER
     Route: 041
     Dates: start: 20170222, end: 20170222
  35. CISATRACURIUM. [Concomitant]
     Active Substance: CISATRACURIUM
     Indication: H1N1 INFLUENZA
     Dosage: 10 MILLIGRAM
     Route: 041
     Dates: start: 20170219, end: 20170221
  36. METHYLPREDNISOLONE. [Concomitant]
     Active Substance: METHYLPREDNISOLONE
     Dosage: 40 MILLIGRAM
     Route: 041
     Dates: start: 20170217, end: 20170219
  37. PROPOFOL. [Concomitant]
     Active Substance: PROPOFOL
     Dosage: 200 MILLIGRAM
     Route: 041
     Dates: start: 20170220, end: 20170220
  38. CLONAZEPAN [Concomitant]
     Active Substance: CLONAZEPAM
     Indication: H1N1 INFLUENZA
     Dosage: 2 MILLIGRAM
     Route: 065
     Dates: start: 20170218, end: 20170503
  39. FENTANYL. [Concomitant]
     Active Substance: FENTANYL
     Indication: H1N1 INFLUENZA
     Dosage: 50 MILLILITER
     Route: 041
     Dates: start: 20170219, end: 20170220
  40. FENTANYL. [Concomitant]
     Active Substance: FENTANYL
     Dosage: 50 MILLILITER
     Route: 041
     Dates: start: 20170222, end: 20170227
  41. STERILE SALINE [Concomitant]
     Dosage: 234 MILLILITER
     Route: 041
     Dates: start: 20170220, end: 20170223
  42. STERILE SALINE [Concomitant]
     Dosage: 144 MILLILITER
     Route: 041
     Dates: start: 20170303, end: 20170303
  43. STERILE SALINE [Concomitant]
     Dosage: 250 MILLILITER
     Route: 041
     Dates: start: 20170307, end: 20170307
  44. NORADRENALINE [Concomitant]
     Active Substance: NOREPINEPHRINE
     Indication: H1N1 INFLUENZA
     Dosage: 16 MILLIGRAM
     Route: 041
     Dates: start: 20170219, end: 20170219
  45. MIDAZOLAM [Concomitant]
     Active Substance: MIDAZOLAM HYDROCHLORIDE
     Dosage: 750 MILLIGRAM
     Route: 041
     Dates: start: 20170225, end: 20170226
  46. MIDAZOLAM [Concomitant]
     Active Substance: MIDAZOLAM HYDROCHLORIDE
     Dosage: 15 MILLIGRAM
     Route: 041
     Dates: start: 20170224, end: 20170224
  47. MIDAZOLAM [Concomitant]
     Active Substance: MIDAZOLAM HYDROCHLORIDE
     Route: 041
     Dates: start: 20170227, end: 20170227
  48. MIDAZOLAM [Concomitant]
     Active Substance: MIDAZOLAM HYDROCHLORIDE
     Dosage: 2500 MILLIGRAM
     Route: 041
     Dates: start: 20170301, end: 20170301
  49. DEXMEDETOMIDINE. [Concomitant]
     Active Substance: DEXMEDETOMIDINE
     Dosage: 600 MICROGRAM
     Route: 041
     Dates: start: 20170223, end: 20170223
  50. MERONEM [Concomitant]
     Active Substance: MEROPENEM
     Indication: H1N1 INFLUENZA
     Dosage: 1 GRAM
     Route: 041
     Dates: start: 20170224, end: 20170225
  51. PROPANTELINE [Concomitant]
     Dosage: 1 APPLICATION (TTS)
     Route: 065
     Dates: start: 20170307, end: 20170308
  52. GLUCOSE [Concomitant]
     Active Substance: DEXTROSE
     Indication: H1N1 INFLUENZA
     Dosage: 250 MILLILITER
     Route: 041
     Dates: start: 20170310, end: 20170310
  53. POTASSIUM PHOSPHATE [Concomitant]
     Active Substance: POTASSIUM PHOSPHATE
     Indication: H1N1 INFLUENZA
     Dosage: 20 MILLILITER
     Route: 041
     Dates: start: 20170310, end: 20170310
  54. ENOXAPARIN SODIUM. [Concomitant]
     Active Substance: ENOXAPARIN SODIUM
     Indication: H1N1 INFLUENZA
     Dosage: 40 MILLIGRAM
     Route: 058
     Dates: start: 20170316, end: 20170502
  55. MAGNESIUM OXIDE. [Concomitant]
     Active Substance: MAGNESIUM OXIDE
     Indication: H1N1 INFLUENZA
     Dosage: 250MG/5ML (VO)
     Route: 065
     Dates: start: 20170317, end: 20170401
  56. BROMOPRIDE [Concomitant]
     Active Substance: BROMOPRIDE
     Indication: H1N1 INFLUENZA
     Dosage: 30 MILLIGRAM
     Route: 065
     Dates: start: 20170412, end: 20170503
  57. NEULASTIM [Concomitant]
     Active Substance: PEGFILGRASTIM
     Indication: NEUTROPENIA
     Dosage: 6 MILLIGRAM
     Route: 058
     Dates: start: 20170426, end: 20170426
  58. GLYCOLYZED SALINE [Concomitant]
     Dosage: 242 MILLILITER
     Route: 041
     Dates: start: 20170220, end: 20170220
  59. HUMAN ALBUMIN [Concomitant]
     Active Substance: ALBUMIN HUMAN
     Dosage: 50 MILLILITER
     Route: 041
     Dates: start: 20170222, end: 20170222
  60. HUMAN ALBUMIN [Concomitant]
     Active Substance: ALBUMIN HUMAN
     Dosage: 50 MILLILITER
     Route: 041
     Dates: start: 20170223, end: 20170223
  61. METHYLPREDNISOLONE. [Concomitant]
     Active Substance: METHYLPREDNISOLONE
     Dosage: 60 MILLIGRAM
     Route: 041
     Dates: start: 20170303, end: 20170308
  62. STERILE SALINE [Concomitant]
     Dosage: 250 MILLILITER
     Route: 041
     Dates: start: 20170220, end: 20170220
  63. STERILE SALINE [Concomitant]
     Dosage: 100 MILLILITER
     Route: 041
     Dates: start: 20170224, end: 20170224
  64. STERILE SALINE [Concomitant]
     Dosage: 150 MILLILITER
     Route: 041
     Dates: start: 20170225, end: 20170226
  65. NORADRENALINE [Concomitant]
     Active Substance: NOREPINEPHRINE
     Dosage: 16 MILLILITER
     Route: 041
     Dates: start: 20170220, end: 20170223
  66. CALCIUM GLUCONATE. [Concomitant]
     Active Substance: CALCIUM GLUCONATE
     Dosage: 20 MILLILITER
     Route: 041
     Dates: start: 20170222, end: 20170222
  67. SEROQUEL [Concomitant]
     Active Substance: QUETIAPINE FUMARATE
     Indication: H1N1 INFLUENZA
     Dosage: 25 MILLIGRAMS (SNE)
     Route: 065
     Dates: start: 20170222, end: 20170222
  68. SEROQUEL [Concomitant]
     Active Substance: QUETIAPINE FUMARATE
     Dosage: 12.5 MILLIGRAMS (SNE)
     Route: 065
     Dates: start: 20170305
  69. DIPYRONE [Concomitant]
     Active Substance: DIPYRONE
     Dosage: 2 GRAM
     Route: 041
     Dates: start: 20170308, end: 20170503
  70. MERONEM [Concomitant]
     Active Substance: MEROPENEM
     Dosage: 1 GRAM
     Route: 041
     Dates: start: 20170226, end: 20170307
  71. PARACETAMOL [Concomitant]
     Active Substance: ACETAMINOPHEN
     Dosage: 40 DROPS (SNE)
     Route: 065
     Dates: start: 20170225, end: 20170227
  72. DIGESAN [Concomitant]
     Active Substance: BROMOPRIDE
     Indication: H1N1 INFLUENZA
     Dosage: 10 MILLIGRAM
     Route: 041
     Dates: start: 20170301, end: 20170307
  73. LORAZEPAM. [Concomitant]
     Active Substance: LORAZEPAM
     Indication: H1N1 INFLUENZA
     Dosage: 1 MILLIGRAM (SNE)
     Route: 065
     Dates: start: 20170303, end: 20170321
  74. MAGNE B6 [Concomitant]
     Active Substance: MAGNESIUM\PYRIDOXINE
     Indication: H1N1 INFLUENZA
     Dosage: 1 TABLET (722.2MG/1MG)
     Route: 065
     Dates: start: 20170403, end: 20170406
  75. CARIAX MOUTHWASH [Concomitant]
     Indication: H1N1 INFLUENZA
     Dosage: 10 MILLILITERS (VO)
     Route: 065
     Dates: start: 20170409, end: 20170503
  76. GRANULOKINE [Concomitant]
     Active Substance: FILGRASTIM
     Indication: NEUTROPENIA
     Dosage: 300 MICROGRAM
     Route: 041
     Dates: start: 20170502, end: 20170503
  77. CC-5013 [Suspect]
     Active Substance: LENALIDOMIDE
     Indication: LYMPHOMA
     Dosage: 20 MILLIGRAM
     Route: 048
     Dates: start: 20161125, end: 20161221
  78. CC-5013 [Suspect]
     Active Substance: LENALIDOMIDE
     Dosage: 20 MILLIGRAM
     Route: 048
     Dates: start: 20170120, end: 20170223
  79. RITUXIMAB. [Suspect]
     Active Substance: RITUXIMAB
     Dosage: 637.5 MILLIGRAM/SQ. METER
     Route: 041
     Dates: start: 20170405
  80. GLYCOLYZED SALINE [Concomitant]
     Indication: H1N1 INFLUENZA
     Dosage: 500 MILLILITER
     Route: 041
     Dates: start: 20170217, end: 20170217
  81. GLYCOLYZED SALINE [Concomitant]
     Dosage: 250 MILLILITER
     Route: 041
     Dates: start: 20170219, end: 20170220
  82. GLYCOLYZED SALINE [Concomitant]
     Dosage: 250 MILLILITER
     Route: 041
     Dates: start: 20170223, end: 20170223
  83. GLYCOLYZED SALINE [Concomitant]
     Dosage: 250 MILLILITER
     Route: 041
     Dates: start: 20170304, end: 20170306
  84. SERUM GLYCOSATED [Concomitant]
     Indication: PRODUCT USED FOR UNKNOWN INDICATION
     Dosage: 250 MILLILITER
     Route: 041
     Dates: start: 20170217, end: 20170218
  85. CISATRACURIUM. [Concomitant]
     Active Substance: CISATRACURIUM
     Dosage: 10 MILLILITER
     Route: 041
     Dates: start: 20170221, end: 20170221
  86. HYDROCORTISONE. [Concomitant]
     Active Substance: HYDROCORTISONE
     Indication: H1N1 INFLUENZA
     Dosage: 100 MILLIGRAM
     Route: 041
     Dates: start: 20170217, end: 20170217
  87. METHYLPREDNISOLONE. [Concomitant]
     Active Substance: METHYLPREDNISOLONE
     Dosage: 30 MILLIGRAM
     Route: 041
     Dates: start: 20170224, end: 20170227
  88. PROPOFOL. [Concomitant]
     Active Substance: PROPOFOL
     Dosage: 300 MILLILITER
     Route: 041
     Dates: start: 20170219, end: 20170219
  89. PROPOFOL. [Concomitant]
     Active Substance: PROPOFOL
     Dosage: 100 MILLILITER
     Route: 041
     Dates: start: 20170223, end: 20170223
  90. PROPOFOL. [Concomitant]
     Active Substance: PROPOFOL
     Dosage: 5 MILLILITER
     Route: 041
     Dates: start: 20170223, end: 20170223
  91. PANTOPRAZOLE [Concomitant]
     Active Substance: PANTOPRAZOLE
     Indication: H1N1 INFLUENZA
     Dosage: 40 MILLIGRAM
     Route: 041
     Dates: start: 20170218, end: 20170503
  92. ESCITALOPRAM [Concomitant]
     Active Substance: ESCITALOPRAM OXALATE
     Indication: H1N1 INFLUENZA
     Dosage: 10 MILLIGRAM
     Route: 065
     Dates: start: 20170218, end: 20170219
  93. FENTANYL. [Concomitant]
     Active Substance: FENTANYL
     Dosage: 100 MILLILITER
     Route: 041
     Dates: start: 20170228, end: 20170228
  94. STERILE SALINE [Concomitant]
     Dosage: 100 MILLILITER
     Route: 041
     Dates: start: 20170220, end: 20170220
  95. STERILE SALINE [Concomitant]
     Dosage: 100 MILLILITER
     Route: 041
     Dates: start: 20170221, end: 20170221
  96. STERILE SALINE [Concomitant]
     Dosage: 192 MILLILITER
     Route: 041
     Dates: start: 20170224, end: 20170224
  97. SODIUM HEPARIN [Concomitant]
     Active Substance: HEPARIN SODIUM
     Dosage: 10000 IU (INTERNATIONAL UNIT)
     Route: 058
     Dates: start: 20170226, end: 20170226
  98. MAGNESIUM SULFATE. [Concomitant]
     Active Substance: MAGNESIUM SULFATE
     Dosage: 10 MILLILITER
     Route: 041
     Dates: start: 20170223, end: 20170223
  99. HALDOL [Concomitant]
     Active Substance: HALOPERIDOL
     Indication: H1N1 INFLUENZA
     Dosage: 2 MILLIGRAM
     Route: 041
     Dates: start: 20170223, end: 20170223
  100. SEROQUEL [Concomitant]
     Active Substance: QUETIAPINE FUMARATE
     Dosage: 25 MILLIGRAMS (SNE)
     Route: 065
     Dates: start: 20170223, end: 20170225
  101. DIPYRONE [Concomitant]
     Active Substance: DIPYRONE
     Indication: H1N1 INFLUENZA
     Dosage: 2 GRAM
     Route: 041
     Dates: start: 20170222, end: 20170222
  102. PROPANTELINE [Concomitant]
     Dosage: 1 SACHET
     Route: 062
     Dates: start: 20170311, end: 20170319
  103. ATROPINE. [Concomitant]
     Active Substance: ATROPINE
     Dosage: 1 DROPS
     Route: 047
     Dates: start: 20170307, end: 20170309
  104. ONDANSETRON [Concomitant]
     Active Substance: ONDANSETRON
     Indication: H1N1 INFLUENZA
     Dosage: 4 MILLIGRAM
     Route: 041
     Dates: start: 20170405, end: 20170503
  105. COMPOUND BUSCOPAM [Concomitant]
     Indication: H1N1 INFLUENZA
     Dosage: 5 MILLILITER
     Route: 041
     Dates: start: 20170413, end: 20170503
  106. GLYCOLYZED SALINE [Concomitant]
     Dosage: 484 MILLILITER
     Route: 041
     Dates: start: 20170219, end: 20170219
  107. GLYCOLYZED SALINE [Concomitant]
     Dosage: 242 MILLILITER
     Route: 041
     Dates: start: 20170224, end: 20170303
  108. GLYCOLYZED SALINE [Concomitant]
     Dosage: 250 MILLILITER
     Route: 041
     Dates: start: 20170226, end: 20170228
  109. GLYCOLYZED SALINE [Concomitant]
     Dosage: 250 MILLILITER
     Route: 041
     Dates: start: 20170301, end: 20170302
  110. HUMAN ALBUMIN [Concomitant]
     Active Substance: ALBUMIN HUMAN
     Dosage: 50 MILLILITER
     Route: 041
     Dates: start: 20170225, end: 20170225
  111. POTASSIUM CHLORIDE. [Concomitant]
     Active Substance: POTASSIUM CHLORIDE
     Dosage: 20 MILLILITER
     Route: 041
     Dates: start: 20170220, end: 20170220
  112. POTASSIUM CHLORIDE. [Concomitant]
     Active Substance: POTASSIUM CHLORIDE
     Dosage: 20 MILLILITER
     Route: 041
     Dates: start: 20170221, end: 20170221
  113. HYDROCORTISONE. [Concomitant]
     Active Substance: HYDROCORTISONE
     Dosage: 50 MILLIGRAM
     Route: 041
     Dates: start: 20170223, end: 20170224
  114. PROPOFOL. [Concomitant]
     Active Substance: PROPOFOL
     Dosage: 400 MILLILITER
     Route: 041
     Dates: start: 20170222, end: 20170222
  115. STERILE SALINE [Concomitant]
     Dosage: 300 MILLILITER
     Route: 041
     Dates: start: 20170222, end: 20170222
  116. NORADRENALINE [Concomitant]
     Active Substance: NOREPINEPHRINE
     Dosage: 8 MILLIGRAM
     Route: 041
     Dates: start: 20170224, end: 20170303
  117. ENDOBULIN [Concomitant]
     Active Substance: HUMAN IMMUNOGLOBULIN G
     Indication: H1N1 INFLUENZA
     Dosage: 30 GRAM
     Route: 041
     Dates: start: 20170219, end: 20170219
  118. MIDAZOLAM [Concomitant]
     Active Substance: MIDAZOLAM HYDROCHLORIDE
     Dosage: 1500 MILLIGRAM
     Route: 041
     Dates: start: 20170302, end: 20170302
  119. SUCCINIL COLIN [Concomitant]
     Indication: H1N1 INFLUENZA
     Dosage: 70 MILLIGRAM
     Route: 041
     Dates: start: 20170223, end: 20170223
  120. LINEZOLID. [Concomitant]
     Active Substance: LINEZOLID
     Indication: H1N1 INFLUENZA
     Dosage: 600 MILLIGRAM
     Route: 041
     Dates: start: 20170225, end: 20170307
  121. PARACETAMOL [Concomitant]
     Active Substance: ACETAMINOPHEN
     Indication: H1N1 INFLUENZA
     Dosage: 40 DROPS (SNE)
     Route: 065
     Dates: start: 20170224, end: 20170224
  122. PROPANTELINE [Concomitant]
     Indication: H1N1 INFLUENZA
     Dosage: 1 APPLICATION (TTS)
     Route: 062
     Dates: start: 20170311, end: 20170319
  123. XYLOPROCT [Concomitant]
     Indication: H1N1 INFLUENZA
     Dosage: 1 APPLICATION
     Route: 061
     Dates: start: 20170326, end: 20170503
  124. DRAMIN B6 [Concomitant]
     Indication: H1N1 INFLUENZA
     Dosage: 10 MILLILITER
     Route: 041
     Dates: start: 20170423, end: 20170503
  125. CC-5013 [Suspect]
     Active Substance: LENALIDOMIDE
     Dosage: 15 MILLIGRAM
     Route: 048
     Dates: start: 20170405
  126. GLYCOLYZED SALINE [Concomitant]
     Dosage: 250 MILLILITER
     Route: 041
     Dates: start: 20170218, end: 20170218
  127. GLYCOLYZED SALINE [Concomitant]
     Dosage: 250 MILLILITER
     Route: 041
     Dates: start: 20170223, end: 20170223
  128. GLYCOLYZED SALINE [Concomitant]
     Dosage: 100 MILLILITER
     Route: 041
     Dates: start: 20170310, end: 20170310
  129. POTASSIUM CHLORIDE. [Concomitant]
     Active Substance: POTASSIUM CHLORIDE
     Dosage: 10 MILLILITER
     Route: 041
     Dates: start: 20170223, end: 20170223
  130. CISATRACURIUM. [Concomitant]
     Active Substance: CISATRACURIUM
     Dosage: 200 MILLIGRAM
     Route: 041
     Dates: start: 20170219, end: 20170219
  131. CISATRACURIUM. [Concomitant]
     Active Substance: CISATRACURIUM
     Dosage: 300 MILLIGRAM
     Route: 041
     Dates: start: 20170220, end: 20170220
  132. CISATRACURIUM. [Concomitant]
     Active Substance: CISATRACURIUM
     Dosage: 5 MILLILITER
     Route: 041
     Dates: start: 20170225, end: 20170226
  133. METHYLPREDNISOLONE. [Concomitant]
     Active Substance: METHYLPREDNISOLONE
     Dosage: 40 MILLIGRAM
     Route: 041
     Dates: start: 20170309, end: 20170314
  134. PROPOFOL. [Concomitant]
     Active Substance: PROPOFOL
     Indication: H1N1 INFLUENZA
     Dosage: 200 MILLIGRAM
     Route: 041
     Dates: start: 20170217, end: 20170228
  135. PROPOFOL. [Concomitant]
     Active Substance: PROPOFOL
     Dosage: 200 MILLILITER
     Route: 041
     Dates: start: 20170224, end: 20170224
  136. PURAN [Concomitant]
     Active Substance: LEVOTHYROXINE SODIUM
     Indication: H1N1 INFLUENZA
     Dosage: 50 MICROGRAM
     Route: 065
     Dates: start: 20170218, end: 20170503
  137. FENTANYL. [Concomitant]
     Active Substance: FENTANYL
     Dosage: 100 MILLILITER
     Route: 041
     Dates: start: 20170221, end: 20170221
  138. STERILE SALINE [Concomitant]
     Dosage: 50 MILLILITER
     Route: 041
     Dates: start: 20170301, end: 20170302
  139. NORADRENALINE [Concomitant]
     Active Substance: NOREPINEPHRINE
     Dosage: 8 MILLIGRAM
     Route: 041
     Dates: start: 20170220, end: 20170220
  140. SODIUM HEPARIN [Concomitant]
     Active Substance: HEPARIN SODIUM
     Indication: H1N1 INFLUENZA
     Dosage: 5000 IU (INTERNATIONAL UNIT)
     Route: 058
     Dates: start: 20170220, end: 20170306
  141. MAGNESIUM SULFATE. [Concomitant]
     Active Substance: MAGNESIUM SULFATE
     Dosage: 20 MILLILITER
     Route: 041
     Dates: start: 20170224, end: 20170224
  142. MAGNESIUM SULFATE. [Concomitant]
     Active Substance: MAGNESIUM SULFATE
     Dosage: 20 MILLILITER
     Route: 041
     Dates: start: 20170307, end: 20170307
  143. MIDAZOLAM [Concomitant]
     Active Substance: MIDAZOLAM HYDROCHLORIDE
     Route: 041
     Dates: start: 20170228, end: 20170228
  144. DEXMEDETOMIDINE. [Concomitant]
     Active Substance: DEXMEDETOMIDINE
     Dosage: 600 MICROGRAM
     Route: 041
     Dates: start: 20170303, end: 20170303
  145. DIPYRONE [Concomitant]
     Active Substance: DIPYRONE
     Dosage: 2 GRAM
     Route: 041
     Dates: start: 20170225, end: 20170227
  146. DIPYRONE [Concomitant]
     Active Substance: DIPYRONE
     Dosage: 2 GRAM
     Route: 041
     Dates: start: 20170305, end: 20170306
  147. METHADONE [Concomitant]
     Active Substance: METHADONE HYDROCHLORIDE
     Indication: H1N1 INFLUENZA
     Dosage: 5 MILLIGRAMS (SNE)
     Route: 065
     Dates: start: 20170224, end: 20170228
  148. IVERMECTIN. [Concomitant]
     Active Substance: IVERMECTIN
     Indication: H1N1 INFLUENZA
     Dosage: 12 MILLIGRAM (SNE)
     Route: 065
     Dates: start: 20170228, end: 20170228
  149. LORAX [Concomitant]
     Indication: H1N1 INFLUENZA
     Dosage: 2 MILLIGRAMS (SNE)
     Route: 065
     Dates: start: 20170303, end: 20170325
  150. SODIUM NITROPPRUSSIDE [Concomitant]
     Indication: H1N1 INFLUENZA
     Dosage: 50 MILLIGRAM
     Route: 041
     Dates: start: 20170305, end: 20170306
  151. ATROPINE. [Concomitant]
     Active Substance: ATROPINE
     Indication: H1N1 INFLUENZA
     Dosage: 1 DROPS
     Route: 047
     Dates: start: 20170306, end: 20170307
  152. REMERON [Concomitant]
     Active Substance: MIRTAZAPINE
     Indication: H1N1 INFLUENZA
     Dosage: 15 MILLIGRAM (VO)
     Route: 065
     Dates: start: 20170420, end: 20170503
  153. HUMAN ALBUMIN [Concomitant]
     Active Substance: ALBUMIN HUMAN
     Indication: H1N1 INFLUENZA
     Dosage: 200 MILLILITER
     Route: 041
     Dates: start: 20170217, end: 20170218
  154. HUMAN ALBUMIN [Concomitant]
     Active Substance: ALBUMIN HUMAN
     Dosage: 100 MILLILITER
     Route: 041
     Dates: start: 20170218, end: 20170218
  155. HUMAN ALBUMIN [Concomitant]
     Active Substance: ALBUMIN HUMAN
     Dosage: 50 MILLILITER
     Route: 041
     Dates: start: 20170218, end: 20170221
  156. POTASSIUM CHLORIDE. [Concomitant]
     Active Substance: POTASSIUM CHLORIDE
     Indication: H1N1 INFLUENZA
     Dosage: 20 MILLILITER
     Route: 041
     Dates: start: 20170218, end: 20170218
  157. POTASSIUM CHLORIDE. [Concomitant]
     Active Substance: POTASSIUM CHLORIDE
     Dosage: 20 MILLILITER
     Route: 041
     Dates: start: 20170310, end: 20170327
  158. CISATRACURIUM. [Concomitant]
     Active Substance: CISATRACURIUM
     Dosage: 300 MILLILITER
     Route: 041
     Dates: start: 20170227, end: 20170228
  159. FLUCONAZOLE. [Concomitant]
     Active Substance: FLUCONAZOLE
     Indication: URINARY TRACT INFECTION FUNGAL
     Dosage: 200 MILLIGRAM
     Route: 065
  160. FLUCONAZOLE. [Concomitant]
     Active Substance: FLUCONAZOLE
     Dosage: 400 MILLIGRAM
     Route: 041
     Dates: start: 20170307, end: 20170314
  161. PLASMA LYTE [Concomitant]
     Indication: H1N1 INFLUENZA
     Dosage: 400 MILLILITER
     Route: 041
     Dates: start: 20170218, end: 20170218
  162. STERILE SALINE [Concomitant]
     Dosage: 100 MILLILITER
     Route: 041
     Dates: start: 20170221, end: 20170221
  163. STERILE SALINE [Concomitant]
     Dosage: 150 MILLILITER
     Route: 041
     Dates: start: 20170227, end: 20170228
  164. MAGNESIUM SULFATE. [Concomitant]
     Active Substance: MAGNESIUM SULFATE
     Indication: H1N1 INFLUENZA
     Dosage: 20 MILLILITER
     Route: 041
     Dates: start: 20170221, end: 20170221
  165. MAGNESIUM SULFATE. [Concomitant]
     Active Substance: MAGNESIUM SULFATE
     Dosage: 20 MILLILITER
     Route: 041
     Dates: start: 20170310, end: 20170430
  166. MIDAZOLAM [Concomitant]
     Active Substance: MIDAZOLAM HYDROCHLORIDE
     Dosage: 250 MILLIGRAM
     Route: 041
     Dates: start: 20170303, end: 20170303
  167. SIMETHICONE (DIMETHICONE) [Concomitant]
     Active Substance: DIMETHICONE
     Indication: H1N1 INFLUENZA
     Dosage: 40 DROPS (SNE)
     Route: 065
     Dates: start: 20170310, end: 20170503
  168. PREDNISONE. [Concomitant]
     Active Substance: PREDNISONE
     Indication: H1N1 INFLUENZA
     Dosage: 20 MILLIGRAM
     Route: 041
     Dates: start: 20170315, end: 20170409
  169. BEPANTOL DERMA [Concomitant]
     Indication: H1N1 INFLUENZA
     Dosage: 1 APPLICATION
     Route: 061
     Dates: start: 20170409, end: 20170503
  170. RITUXIMAB. [Suspect]
     Active Substance: RITUXIMAB
     Indication: LYMPHOMA
     Dosage: 637.5 MILLIGRAM/SQ. METER
     Route: 041
     Dates: start: 20161125, end: 20161216
  171. GLYCOLYZED SALINE [Concomitant]
     Dosage: 250 MILLILITER
     Route: 041
     Dates: start: 20170221, end: 20170221
  172. POTASSIUM CHLORIDE. [Concomitant]
     Active Substance: POTASSIUM CHLORIDE
     Dosage: 10 MILLILITER
     Route: 041
     Dates: start: 20170220, end: 20170220
  173. POTASSIUM CHLORIDE. [Concomitant]
     Active Substance: POTASSIUM CHLORIDE
     Dosage: 30 MILLILITER
     Route: 041
     Dates: start: 20170223, end: 20170223
  174. POTASSIUM CHLORIDE. [Concomitant]
     Active Substance: POTASSIUM CHLORIDE
     Dosage: 20 MILLILITER
     Route: 041
     Dates: start: 20170307, end: 20170307
  175. CISATRACURIUM. [Concomitant]
     Active Substance: CISATRACURIUM
     Dosage: 5 MILLILITER
     Route: 041
     Dates: start: 20170219, end: 20170219
  176. CISATRACURIUM. [Concomitant]
     Active Substance: CISATRACURIUM
     Dosage: 20 MILLILITER
     Route: 041
     Dates: start: 20170224, end: 20170224
  177. PROPOFOL. [Concomitant]
     Active Substance: PROPOFOL
     Dosage: 300 MILLILITER
     Route: 041
     Dates: start: 20170221, end: 20170221
  178. FENTANYL. [Concomitant]
     Active Substance: FENTANYL
     Dosage: 50 MILLILITER
     Route: 041
     Dates: start: 20170301, end: 20170305
  179. STERILE SALINE [Concomitant]
     Indication: H1N1 INFLUENZA
     Dosage: 100 MILLILITER
     Route: 041
     Dates: start: 20170219, end: 20170219
  180. STERILE SALINE [Concomitant]
     Dosage: 48 MILLILITER
     Route: 041
     Dates: start: 20170222, end: 20170222
  181. STERILE SALINE [Concomitant]
     Dosage: 100 MILLILITER
     Route: 041
     Dates: start: 20170227, end: 20170227
  182. CALCIUM GLUCONATE. [Concomitant]
     Active Substance: CALCIUM GLUCONATE
     Indication: H1N1 INFLUENZA
     Dosage: 20 MILLILITER
     Route: 041
     Dates: start: 20170220, end: 20170220
  183. MAGNESIUM SULFATE. [Concomitant]
     Active Substance: MAGNESIUM SULFATE
     Dosage: 20 MILLILITER
     Route: 041
     Dates: start: 20170309, end: 20170309
  184. MIDAZOLAM [Concomitant]
     Active Substance: MIDAZOLAM HYDROCHLORIDE
     Dosage: 5 MILLIGRAM
     Route: 041
     Dates: start: 20170224, end: 20170224
  185. SLOW K [Concomitant]
     Active Substance: POTASSIUM CHLORIDE
     Indication: H1N1 INFLUENZA
     Dosage: 600 MILLIGRAMS (ENT)
     Route: 065
     Dates: start: 20170319, end: 20170428

REACTIONS (4)
  - Acute kidney injury [Recovered/Resolved]
  - Febrile neutropenia [Recovered/Resolved]
  - General physical health deterioration [Recovered/Resolved]
  - Pneumonia influenzal [Recovered/Resolved]

NARRATIVE: CASE EVENT DATE: 20170217
